FAERS Safety Report 5140190-9 (Version None)
Quarter: 2006Q4

REPORT INFORMATION
  Report Type: 
  Country: None (occurrence: None)
  Receive Date: 20061031
  Receipt Date: 20061023
  Transmission Date: 20070319
  Serious: Yes (Other)
  Sender: FDA-Public Use
  Company Number: GB-BRISTOL-MYERS SQUIBB COMPANY-13551171

PATIENT
  Age: 43 Year
  Sex: Male

DRUGS (4)
  1. CYCLOPHOSPHAMIDE [Suspect]
     Indication: BURKITT'S LYMPHOMA
     Dates: start: 19980101, end: 19980901
  2. METHOTREXATE [Suspect]
     Indication: BURKITT'S LYMPHOMA
     Dates: start: 19980101, end: 19980901
  3. DOXORUBICIN HCL [Suspect]
     Indication: BURKITT'S LYMPHOMA
     Dates: start: 19980101, end: 19980901
  4. VINCRISTINE [Suspect]
     Indication: BURKITT'S LYMPHOMA
     Dates: start: 19980101, end: 19980901

REACTIONS (1)
  - OSTEOPOROSIS [None]
